FAERS Safety Report 10250081 (Version 2)
Quarter: 2014Q2

REPORT INFORMATION
  Report Type: Spontaneous
  Country: US (occurrence: US)
  Receive Date: 20140620
  Receipt Date: 20140620
  Transmission Date: 20141212
  Serious: No
  Sender: FDA-Public Use
  Company Number: US-BRISTOL-MYERS SQUIBB COMPANY-20642450

PATIENT
  Age: 82 Year
  Sex: Female
  Weight: 63.04 kg

DRUGS (6)
  1. ELIQUIS [Suspect]
     Indication: CEREBROVASCULAR ACCIDENT PROPHYLAXIS
     Route: 048
     Dates: start: 20140328
  2. ALPRAZOLAM [Concomitant]
     Route: 048
  3. ALPRAZOLAM [Concomitant]
     Route: 048
     Dates: start: 20140319
  4. AMOXICILLIN [Concomitant]
     Route: 048
     Dates: start: 20140317, end: 20140327
  5. HYDROCODONE + HOMATROPINE [Concomitant]
     Dosage: 1.5 MG/5 ML (5 ML) SYRUP
     Route: 048
     Dates: start: 20140317
  6. METOPROLOL [Concomitant]
     Route: 048
     Dates: start: 20140320

REACTIONS (1)
  - Hyperhidrosis [Unknown]
